FAERS Safety Report 4800264-6 (Version None)
Quarter: 2005Q4

REPORT INFORMATION
  Report Type: 
  Country: None (occurrence: None)
  Receive Date: 20051013
  Receipt Date: 20050930
  Transmission Date: 20060501
  Serious: Yes (Other)
  Sender: FDA-Public Use
  Company Number: 2005126436

PATIENT
  Age: 52 Year
  Sex: Male
  Weight: 60.3 kg

DRUGS (16)
  1. VFEND [Suspect]
     Indication: CANDIDA PNEUMONIA
     Dosage: 400 MG (200 MG, 2 IN 1 D), INRAVENOUS
     Route: 042
     Dates: start: 20050818, end: 20050902
  2. ALL OTHER THERAPEUTIC PRODUCTS (ALL OTHER THERAPEUTIC PRODUCTS) [Concomitant]
  3. DIFLUCAN [Concomitant]
  4. FUNGIZONE (AMPHOTERICINIB) (AMPHOTHERICIN  B) [Concomitant]
  5. PREDNISONE [Concomitant]
  6. NEORAL [Concomitant]
  7. FAMOTIDINE [Concomitant]
  8. SUCRALFATE [Concomitant]
  9. AMOBAN (ZOPICLONE) [Concomitant]
  10. ACTONEL (SODIUM RISEDRONATE HYDRATE) (RISEDRONATE SODIUM) [Concomitant]
  11. ALLOID G (SODIUM ALGINATE) [Concomitant]
  12. BAKTAR (SULFAMETHOXAZOLE/TRIMETHOPRIM 1 ) [Concomitant]
  13. GANCICLOVIR SODIUM [Concomitant]
  14. SULPERAZON (SULBACTAM/CEFOPERAZONE) [Concomitant]
  15. TIENAM (MIMIPENEM/CILASTATIN) [Concomitant]
  16. ZOLPIDEM TARTRATE [Concomitant]

REACTIONS (4)
  - ALANINE AMINOTRANSFERASE INCREASED [None]
  - ASPARTATE AMINOTRANSFERASE INCREASED [None]
  - BLOOD BETA-D-GLUCAN INCREASED [None]
  - HEPATIC FUNCTION ABNORMAL [None]
